FAERS Safety Report 13841566 (Version 1)
Quarter: 2017Q3

REPORT INFORMATION
  Report Type: Spontaneous
  Country: GB (occurrence: GB)
  Receive Date: 20170807
  Receipt Date: 20170807
  Transmission Date: 20171127
  Serious: Yes (Hospitalization, Other)
  Sender: FDA-Public Use
  Company Number: GB-BAUSCH-BL-2017-022995

PATIENT
  Age: 32 Year
  Sex: Female

DRUGS (8)
  1. MARCAINE [Suspect]
     Active Substance: BUPIVACAINE HYDROCHLORIDE
     Indication: CATHETER PLACEMENT
     Route: 065
     Dates: start: 20170711
  2. NAPROXEN. [Concomitant]
     Active Substance: NAPROXEN
     Indication: PAIN
  3. GABAPENTIN. [Concomitant]
     Active Substance: GABAPENTIN
     Indication: PAIN
  4. DEXAMETHASONE. [Suspect]
     Active Substance: DEXAMETHASONE
     Indication: NERVE BLOCK
     Route: 065
     Dates: start: 20170711, end: 2017
  5. DYSPORT [Concomitant]
     Active Substance: ABOBOTULINUMTOXINA
     Indication: MUSCLE SPASMS
  6. CLONIDINE. [Suspect]
     Active Substance: CLONIDINE
     Indication: CATHETER PLACEMENT
     Route: 065
     Dates: start: 20170711
  7. LAMOTRIGINE. [Concomitant]
     Active Substance: LAMOTRIGINE
     Indication: MOOD SWINGS
  8. SERETIDE [Concomitant]
     Active Substance: FLUTICASONE PROPIONATE\SALMETEROL XINAFOATE
     Indication: ASTHMA
     Dosage: 2 PUFFS

REACTIONS (6)
  - Stridor [Recovered/Resolved with Sequelae]
  - Sensation of foreign body [Recovered/Resolved with Sequelae]
  - Off label use [Recovered/Resolved]
  - Respiration abnormal [Recovered/Resolved]
  - Irregular breathing [Recovered/Resolved with Sequelae]
  - Cough [Recovered/Resolved with Sequelae]

NARRATIVE: CASE EVENT DATE: 201705
